FAERS Safety Report 9760256 (Version 1)
Quarter: 2013Q4

REPORT INFORMATION
  Report Type: Spontaneous
  Country: US (occurrence: US)
  Receive Date: 20131216
  Receipt Date: 20131216
  Transmission Date: 20140711
  Serious: No
  Sender: FDA-Public Use
  Company Number: US-GILEAD-2010-0028375

PATIENT
  Age: 45 Year
  Sex: Female

DRUGS (19)
  1. LETAIRIS [Suspect]
     Indication: FLUID RETENTION
     Route: 048
     Dates: start: 20100304, end: 20100314
  2. LISINOPRIL [Concomitant]
  3. LEVOXYL [Concomitant]
  4. PREDNISONE [Concomitant]
  5. FUROSEMIDE [Concomitant]
  6. METOPROLOL [Concomitant]
  7. XALATAN [Concomitant]
  8. DICLOFENAC [Concomitant]
  9. VICODIN [Concomitant]
  10. TRAMADOL [Concomitant]
  11. MIRAPEX [Concomitant]
  12. KCL [Concomitant]
  13. REVATIO [Concomitant]
  14. SINAREST [Concomitant]
  15. PAMELOR [Concomitant]
  16. CLEOCIN [Concomitant]
  17. NAPROXEN [Concomitant]
  18. HCTZ [Concomitant]
  19. PROAIR [Concomitant]

REACTIONS (4)
  - Muscle spasms [Recovered/Resolved]
  - Nausea [Recovered/Resolved]
  - Vomiting [Recovered/Resolved]
  - Fluid retention [Recovered/Resolved]
